FAERS Safety Report 8585650 (Version 14)
Quarter: 2014Q3

REPORT INFORMATION
  Report Type: Spontaneous
  Country: US (occurrence: US)
  Receive Date: 20120530
  Receipt Date: 20140804
  Transmission Date: 20150326
  Serious: Yes (Hospitalization)
  Sender: FDA-Public Use
  Company Number: US-GLAXOSMITHKLINE-A0957205A

PATIENT
  Age: 57 Year
  Sex: Male
  Weight: 76.4 kg

DRUGS (7)
  1. TYVASO [Suspect]
     Active Substance: TREPROSTINIL
     Indication: PRODUCT USED FOR UNKNOWN INDICATION
     Route: 065
  2. VENTAVIS [Concomitant]
     Active Substance: ILOPROST
  3. COUMADIN [Concomitant]
     Active Substance: WARFARIN SODIUM
  4. REVATIO [Concomitant]
     Active Substance: SILDENAFIL CITRATE
  5. LETAIRIS [Suspect]
     Active Substance: AMBRISENTAN
     Indication: PULMONARY ARTERIAL HYPERTENSION
     Dosage: 10MG UNKNOWN
     Route: 048
  6. EPOPROSTENOL [Concomitant]
     Active Substance: EPOPROSTENOL
  7. FLOLAN [Suspect]
     Active Substance: EPOPROSTENOL SODIUM
     Indication: PULMONARY ARTERIAL HYPERTENSION
     Dosage: 27NGK CONTINUOUS
     Route: 042
     Dates: start: 20080820

REACTIONS (15)
  - Diarrhoea [Recovering/Resolving]
  - Infection [Unknown]
  - Central venous catheterisation [Unknown]
  - Chest pain [Unknown]
  - Pain [Unknown]
  - Pain in jaw [Recovering/Resolving]
  - Flushing [Recovering/Resolving]
  - Dyspnoea [Unknown]
  - Device related infection [Recovering/Resolving]
  - Catheter removal [Unknown]
  - Catheter site infection [Recovering/Resolving]
  - Headache [Recovering/Resolving]
  - Malaise [Recovering/Resolving]
  - Suture rupture [Recovering/Resolving]
  - Sepsis [Unknown]

NARRATIVE: CASE EVENT DATE: 201301
